FAERS Safety Report 9098823 (Version 1)
Quarter: 2013Q1

REPORT INFORMATION
  Report Type: Spontaneous
  Country: US (occurrence: US)
  Receive Date: 20130213
  Receipt Date: 20130213
  Transmission Date: 20140127
  Serious: No
  Sender: FDA-Public Use
  Company Number: US-MYLANLABS-2012S1003280

PATIENT
  Age: 72 Year
  Sex: Female
  Weight: 50 kg

DRUGS (5)
  1. ALPRAZOLAM [Suspect]
     Indication: ANXIETY
     Route: 048
     Dates: start: 20120209, end: 20120210
  2. ALPRAZOLAM [Suspect]
     Indication: INSOMNIA
     Route: 048
     Dates: start: 20120209, end: 20120210
  3. CALCIUM [Concomitant]
  4. VITAMIN D [Concomitant]
  5. EMSAM [Concomitant]
     Dosage: ONE PATCH EVERY OTHER DAY
     Route: 062

REACTIONS (7)
  - Drug ineffective [Recovered/Resolved]
  - Anxiety [Recovered/Resolved]
  - Insomnia [Recovered/Resolved]
  - Tinnitus [Recovered/Resolved]
  - Headache [Recovered/Resolved]
  - Tremor [Recovered/Resolved]
  - Abdominal discomfort [Recovered/Resolved]
